FAERS Safety Report 23104840 (Version 1)
Quarter: 2023Q4

REPORT INFORMATION
  Report Type: Spontaneous
  Country: US (occurrence: None)
  Receive Date: 20231024
  Receipt Date: 20231024
  Transmission Date: 20240110
  Serious: Yes (Other)
  Sender: FDA-Public Use
  Company Number: None

PATIENT
  Age: 59 Year
  Sex: Male

DRUGS (1)
  1. REPATHA [Suspect]
     Active Substance: EVOLOCUMAB
     Dates: start: 20230701, end: 20231023

REACTIONS (4)
  - Pruritus [None]
  - Injection site erythema [None]
  - Injection site swelling [None]
  - Urticaria [None]

NARRATIVE: CASE EVENT DATE: 20231023
